FAERS Safety Report 5566764-9 (Version None)
Quarter: 2007Q4

REPORT INFORMATION
  Report Type: 
  Country: None (occurrence: None)
  Receive Date: 20071219
  Receipt Date: 20071214
  Transmission Date: 20080405
  Serious: Yes (Other)
  Sender: FDA-Public Use
  Company Number: A0665360A

PATIENT
  Sex: Female
  Weight: 1.2 kg

DRUGS (4)
  1. TRIZIVIR [Suspect]
     Indication: HIV INFECTION
     Dates: start: 20070606
  2. KALETRA [Concomitant]
     Indication: HIV INFECTION
     Dates: start: 20060503
  3. TRUVADA [Concomitant]
     Indication: HIV INFECTION
     Dates: start: 20060503
  4. EPIDURAL [Concomitant]

REACTIONS (3)
  - DRUG EXPOSURE DURING PREGNANCY [None]
  - FOETAL DISTRESS SYNDROME [None]
  - PREMATURE BABY [None]
